FAERS Safety Report 26219075 (Version 1)
Quarter: 2025Q4

REPORT INFORMATION
  Report Type: Spontaneous
  Country: US (occurrence: None)
  Receive Date: 20251231
  Receipt Date: 20251231
  Transmission Date: 20260118
  Serious: Yes (Other)
  Sender: ORGANON
  Company Number: US-ORGANON-O2512USA002221

PATIENT
  Sex: Female

DRUGS (1)
  1. NEXPLANON [Suspect]
     Active Substance: ETONOGESTREL
     Indication: Contraception
     Dosage: 1 IMPLANT, 68 MILLIGRAM
     Dates: start: 20251126, end: 20251216

REACTIONS (14)
  - Suicidal ideation [Not Recovered/Not Resolved]
  - Psychotic disorder [Unknown]
  - Post-traumatic stress disorder [Not Recovered/Not Resolved]
  - Mental disorder [Not Recovered/Not Resolved]
  - Injury [Not Recovered/Not Resolved]
  - Panic disorder [Not Recovered/Not Resolved]
  - Palpitations [Unknown]
  - Thirst [Unknown]
  - Brain fog [Unknown]
  - Obsessive-compulsive disorder [Not Recovered/Not Resolved]
  - Attention deficit hyperactivity disorder [Not Recovered/Not Resolved]
  - Hypoaesthesia [Not Recovered/Not Resolved]
  - Mood swings [Not Recovered/Not Resolved]
  - Dizziness [Unknown]

NARRATIVE: CASE EVENT DATE: 20250101
